FAERS Safety Report 15346807 (Version 2)
Quarter: 2018Q4

REPORT INFORMATION
  Report Type: Spontaneous
  Country: NL (occurrence: NL)
  Receive Date: 20180904
  Receipt Date: 20180921
  Transmission Date: 20190204
  Serious: Yes (Disabling, Other)
  Sender: FDA-Public Use
  Company Number: PHHY2018NL086707

PATIENT
  Age: 66 Year
  Sex: Female

DRUGS (5)
  1. VITAMINA B 12 [Interacting]
     Active Substance: CYANOCOBALAMIN
     Indication: VITAMIN B12 DEFICIENCY
     Dosage: 2 DF, UNK
     Route: 065
  2. PANTOPRAZOLE SODIUM. [Suspect]
     Active Substance: PANTOPRAZOLE SODIUM
     Indication: PRODUCT USED FOR UNKNOWN INDICATION
     Dosage: 20 MG, QD
     Route: 065
     Dates: start: 20140717
  3. VITAMINA B 12 [Interacting]
     Active Substance: CYANOCOBALAMIN
     Dosage: UNK UNK, QW
     Route: 065
     Dates: start: 20170903
  4. NORFLOXACIN [Concomitant]
     Active Substance: NORFLOXACIN
     Indication: PRODUCT USED FOR UNKNOWN INDICATION
     Dosage: UNK
     Route: 065
  5. ANTIBIOTICS [Concomitant]
     Active Substance: UNSPECIFIED INGREDIENT
     Indication: CYSTITIS
     Dosage: UNK
     Route: 065

REACTIONS (22)
  - Vein disorder [Not Recovered/Not Resolved]
  - Haematochezia [Unknown]
  - Eating disorder [Not Recovered/Not Resolved]
  - Dysuria [Unknown]
  - Gastrointestinal disorder [Unknown]
  - Speech disorder [Not Recovered/Not Resolved]
  - Drug interaction [Not Recovered/Not Resolved]
  - Angiopathy [Unknown]
  - Thinking abnormal [Not Recovered/Not Resolved]
  - Vitamin B12 deficiency [Not Recovered/Not Resolved]
  - Cystitis [Unknown]
  - Cerebrovascular accident [Not Recovered/Not Resolved]
  - Paralysis [Not Recovered/Not Resolved]
  - Dysphagia [Not Recovered/Not Resolved]
  - Blood urine present [Unknown]
  - Cardiac procedure complication [Unknown]
  - Asthenia [Unknown]
  - Epistaxis [Unknown]
  - Constipation [Unknown]
  - Burning sensation [Unknown]
  - Fatigue [Not Recovered/Not Resolved]
  - Incontinence [Unknown]

NARRATIVE: CASE EVENT DATE: 201510
